FAERS Safety Report 6912910-1 (Version None)
Quarter: 2010Q3

REPORT INFORMATION
  Report Type: 
  Country: None (occurrence: None)
  Receive Date: 20100806
  Receipt Date: 20090319
  Transmission Date: 20110219
  Serious: No
  Sender: FDA-Public Use
  Company Number: US-PFIZER INC-2008160870

PATIENT
  Sex: Female
  Weight: 63.5 kg

DRUGS (7)
  1. DETROL LA [Suspect]
     Indication: POLLAKIURIA
     Dosage: UNK
     Route: 048
     Dates: start: 20080101
  2. OXYBUTYNIN CHLORIDE [Suspect]
     Indication: POLLAKIURIA
     Dates: start: 20080101, end: 20080101
  3. VESICARE [Suspect]
     Indication: POLLAKIURIA
     Dates: start: 20080101, end: 20080101
  4. OPHTHALMOLOGICALS [Concomitant]
     Dosage: UNK
  5. METFORMIN HYDROCHLORIDE [Concomitant]
     Dosage: UNK
  6. DIOVAN [Concomitant]
     Dosage: UNK
  7. SYNTHROID [Concomitant]
     Dosage: UNK

REACTIONS (2)
  - BLOOD CHOLESTEROL INCREASED [None]
  - DRY EYE [None]
